FAERS Safety Report 20102676 (Version 1)
Quarter: 2021Q4

REPORT INFORMATION
  Report Type: Spontaneous
  Country: US (occurrence: US)
  Receive Date: 20211123
  Receipt Date: 20211123
  Transmission Date: 20220303
  Serious: Yes (Other)
  Sender: FDA-Public Use
  Company Number: US-PARI RESPIRATORY EQUIPMENT, INC.-2021PAR00060

PATIENT
  Age: 10 Month
  Sex: Female

DRUGS (6)
  1. KITABIS PAK [Suspect]
     Active Substance: TOBRAMYCIN
     Dosage: 75 MG (1.25 ML) VIA NEBULIZER, 2X/DAY (EVERY 12 HOURS) FOR 28 DAYS ON AND 28 DAYS OFF
  2. PREVACID RAPID DR [Concomitant]
  3. ALBUTEROL SULFATE [Concomitant]
     Active Substance: ALBUTEROL SULFATE
  4. CUVPOSA [Concomitant]
     Active Substance: GLYCOPYRROLATE
  5. DIURIL [Concomitant]
     Active Substance: CHLOROTHIAZIDE
  6. ENALAPRIL MALEATE [Concomitant]
     Active Substance: ENALAPRIL MALEATE

REACTIONS (2)
  - Gastroenterostomy [Recovered/Resolved]
  - Off label use [Unknown]

NARRATIVE: CASE EVENT DATE: 20211106
